FAERS Safety Report 16648649 (Version 1)
Quarter: 2019Q3

REPORT INFORMATION
  Report Type: Spontaneous
  Country: US (occurrence: US)
  Receive Date: 20190730
  Receipt Date: 20190730
  Transmission Date: 20191004
  Serious: Yes (Life-Threatening, Other)
  Sender: FDA-Public Use
  Company Number: US-PFIZER INC-2019317469

PATIENT
  Age: 31 Year
  Sex: Female
  Weight: 117.91 kg

DRUGS (3)
  1. HEPARIN SODIUM. [Suspect]
     Active Substance: HEPARIN SODIUM
     Indication: DEEP VEIN THROMBOSIS
     Dosage: 40000 IU, 2X/DAY
     Route: 058
  2. HEPARIN SODIUM. [Suspect]
     Active Substance: HEPARIN SODIUM
     Dosage: 40000 IU, 3X/DAY
     Route: 058
  3. HEPARIN SODIUM. [Suspect]
     Active Substance: HEPARIN SODIUM
     Dosage: 160000 IU, 3X/DAY
     Route: 058

REACTIONS (3)
  - Activated partial thromboplastin time shortened [Unknown]
  - Drug ineffective [Unknown]
  - Maternal exposure during pregnancy [Unknown]

NARRATIVE: CASE EVENT DATE: 2018
